FAERS Safety Report 5028715-5 (Version None)
Quarter: 2006Q2

REPORT INFORMATION
  Report Type: 
  Country: None (occurrence: None)
  Receive Date: 20060501
  Receipt Date: 20051218
  Transmission Date: 20061013
  Serious: No
  Sender: FDA-Public Use
  Company Number: 2005PV006016

PATIENT
  Age: 34 Year
  Sex: Female
  Weight: 62.1428 kg

DRUGS (3)
  1. SYMLIN [Suspect]
     Indication: DIABETES MELLITUS INSULIN-DEPENDENT
     Dosage: 60 MCG;SC
     Route: 058
     Dates: start: 20051031
  2. HUMALOG [Concomitant]
  3. LANTUS [Concomitant]

REACTIONS (1)
  - RENAL PAIN [None]
